FAERS Safety Report 5371222-0 (Version None)
Quarter: 2007Q2

REPORT INFORMATION
  Report Type: 
  Country: None (occurrence: None)
  Receive Date: 20070622
  Receipt Date: 20070608
  Transmission Date: 20071010
  Serious: Yes (Other)
  Sender: FDA-Public Use
  Company Number: 2007MP000274

PATIENT
  Age: 50 Year
  Sex: Female

DRUGS (2)
  1. GLIADEL [Suspect]
     Indication: GLIOBLASTOMA
     Dosage: 46.2 MG; 1X; ICER
     Dates: start: 20070418
  2. DEPAKENE [Concomitant]

REACTIONS (1)
  - ENCEPHALOPATHY [None]
